FAERS Safety Report 20812534 (Version 2)
Quarter: 2022Q2

REPORT INFORMATION
  Report Type: Spontaneous
  Country: GB (occurrence: GB)
  Receive Date: 20220511
  Receipt Date: 20220518
  Transmission Date: 20220721
  Serious: Yes (Death, Congenital Anomaly, Other)
  Sender: FDA-Public Use
  Company Number: None

PATIENT
  Sex: Male

DRUGS (10)
  1. METFORMIN [Suspect]
     Active Substance: METFORMIN HYDROCHLORIDE
     Indication: Foetal exposure during pregnancy
     Dosage: MATERNAL DOSE: UNK
     Route: 064
  2. LABETALOL [Suspect]
     Active Substance: LABETALOL\LABETALOL HYDROCHLORIDE
     Indication: Foetal exposure during pregnancy
     Dosage: UNK
     Route: 064
  3. FOLIC ACID [Suspect]
     Active Substance: FOLIC ACID
     Indication: Foetal exposure during pregnancy
     Dosage: UNK
     Route: 064
  4. EFAVIRENZ [Suspect]
     Active Substance: EFAVIRENZ
     Indication: Foetal exposure during pregnancy
     Dosage: MATERNAL DOSE: 1 DF, QD
     Route: 064
     Dates: start: 20171006
  5. EMTRICITABINE\TENOFOVIR DISOPROXIL [Suspect]
     Active Substance: EMTRICITABINE\TENOFOVIR DISOPROXIL
     Indication: Foetal exposure during pregnancy
     Dosage: MATERNAL DOSE: 1 DF, QD
     Route: 064
     Dates: start: 20171006, end: 20180205
  6. EMTRICITABINE\TENOFOVIR DISOPROXIL [Suspect]
     Active Substance: EMTRICITABINE\TENOFOVIR DISOPROXIL
     Dosage: UNK
     Route: 064
  7. EMTRICITABINE\TENOFOVIR DISOPROXIL [Suspect]
     Active Substance: EMTRICITABINE\TENOFOVIR DISOPROXIL
     Dosage: MATERNAL DOSE: 1 DF, QD
     Route: 064
  8. EMTRICITABINE\TENOFOVIR DISOPROXIL [Suspect]
     Active Substance: EMTRICITABINE\TENOFOVIR DISOPROXIL
     Dosage: MATERNAL DOSE: 1 DF, QD
     Route: 064
     Dates: start: 20180205
  9. TRUVADA [Suspect]
     Active Substance: EMTRICITABINE\TENOFOVIR DISOPROXIL FUMARATE
     Indication: Foetal exposure during pregnancy
     Dosage: MATERNAL DOSE: 1 DF, QD
     Route: 064
     Dates: start: 20171006, end: 20180205
  10. INSULIN ASPART [Suspect]
     Active Substance: INSULIN ASPART
     Indication: Foetal exposure during pregnancy
     Dosage: UNK
     Route: 064

REACTIONS (5)
  - Trisomy 18 [Fatal]
  - Hydrops foetalis [Unknown]
  - Cleft lip and palate [Unknown]
  - Abortion spontaneous [Unknown]
  - Foetal exposure during pregnancy [Unknown]

NARRATIVE: CASE EVENT DATE: 20171006
